FAERS Safety Report 5354150-6 (Version None)
Quarter: 2007Q2

REPORT INFORMATION
  Report Type: 
  Country: None (occurrence: None)
  Receive Date: 20070612
  Receipt Date: 20070529
  Transmission Date: 20071010
  Serious: Yes (Hospitalization, Other)
  Sender: FDA-Public Use
  Company Number: US-ELI_LILLY_AND_COMPANY-US200705007094

PATIENT
  Age: 68 Year
  Sex: Female

DRUGS (17)
  1. BYETTA [Suspect]
     Indication: DIABETES MELLITUS NON-INSULIN-DEPENDENT
     Dosage: 5 UG, 2/D
     Route: 058
     Dates: start: 20060831, end: 20070520
  2. ISTALOL [Concomitant]
     Indication: INTRAOCULAR PRESSURE INCREASED
     Dosage: UNK, DAILY (1/D)
     Route: 047
     Dates: start: 20050101, end: 20070501
  3. PRILOSEC [Concomitant]
     Indication: HIATUS HERNIA
     Dosage: 20 MG, DAILY (1/D)
     Dates: start: 19970101
  4. COZAAR [Concomitant]
     Indication: BLOOD PRESSURE
     Dosage: UNK, DAILY (1/D)
  5. ACTOS [Concomitant]
     Indication: DIABETES MELLITUS
     Dosage: 30 MG, DAILY (1/D)
  6. PLAVIX [Concomitant]
     Indication: ANTICOAGULANT THERAPY
     Dosage: 75 MG, DAILY (1/D)
     Dates: start: 20060101, end: 20070520
  7. FUROSEMIDE [Concomitant]
     Indication: FLUID RETENTION
     Dosage: 20 MG, DAILY (1/D)
     Dates: start: 19870101
  8. PROZAC [Concomitant]
     Indication: CRYING
     Dosage: 20 MG, DAILY (1/D)
     Dates: start: 19870101
  9. ASPIRIN [Concomitant]
     Indication: ANTICOAGULANT THERAPY
     Dosage: 81 MG, DAILY (1/D)
     Dates: start: 20020101
  10. DITROPAN XL [Concomitant]
     Indication: STRESS URINARY INCONTINENCE
     Dosage: 10 MG, DAILY (1/D)
     Dates: start: 20050101
  11. ALLOPURINOL [Concomitant]
     Indication: NEPHROLITHIASIS
     Dosage: 300 MG, DAILY (1/D)
     Dates: start: 20040101
  12. TOPROL-XL [Concomitant]
     Indication: BLOOD PRESSURE
     Dosage: 12.5 MG, DAILY (1/D)
     Route: 048
     Dates: start: 20061001, end: 20070521
  13. GLIPIZIDE [Concomitant]
     Indication: DIABETES MELLITUS
     Dosage: 5 MG, 3/D
  14. GLIPIZIDE [Concomitant]
     Dosage: 2.5 MG, 2/D
  15. GLIPIZIDE [Concomitant]
     Dosage: 5 MG, 2/D
     Dates: start: 20070501
  16. VYTORIN [Concomitant]
     Indication: BLOOD CHOLESTEROL
     Dosage: UNK, DAILY (1/D)
     Dates: start: 20060601
  17. CARDIZEM CD [Concomitant]
     Dates: end: 20070520

REACTIONS (14)
  - ABDOMINAL DISCOMFORT [None]
  - BALANCE DISORDER [None]
  - BLOOD GLUCOSE DECREASED [None]
  - BLOOD GLUCOSE INCREASED [None]
  - CARDIAC PACEMAKER INSERTION [None]
  - CHEST DISCOMFORT [None]
  - DIZZINESS [None]
  - ERUCTATION [None]
  - FEELING ABNORMAL [None]
  - HEADACHE [None]
  - HEART RATE DECREASED [None]
  - HIGH DENSITY LIPOPROTEIN DECREASED [None]
  - INTRAOCULAR PRESSURE INCREASED [None]
  - SENSATION OF FOREIGN BODY [None]
